FAERS Safety Report 10889478 (Version 2)
Quarter: 2015Q1

REPORT INFORMATION
  Report Type: Spontaneous
  Country: US (occurrence: US)
  Receive Date: 20150305
  Receipt Date: 20150326
  Transmission Date: 20150721
  Serious: Yes (Hospitalization)
  Sender: FDA-Public Use
  Company Number: US-ACTELION-A-US2015-110930

PATIENT
  Age: 14 Year
  Sex: Female

DRUGS (4)
  1. TRACLEER [Suspect]
     Active Substance: BOSENTAN\BOSENTAN MONOHYDRATE
     Indication: PULMONARY ARTERIAL HYPERTENSION
     Dosage: 125 MG, BID
     Route: 048
     Dates: start: 2014
  2. REMODULIN [Concomitant]
     Active Substance: TREPROSTINIL
     Dosage: UNK
     Dates: end: 2014
  3. SILDENAFIL. [Concomitant]
     Active Substance: SILDENAFIL
     Indication: PULMONARY ARTERIAL HYPERTENSION
  4. ADCIRCA [Concomitant]
     Active Substance: TADALAFIL
     Dosage: 40 MG, QD
     Dates: start: 2014

REACTIONS (11)
  - Medical device complication [Unknown]
  - Nasal congestion [Unknown]
  - Staphylococcal infection [Unknown]
  - Application site hypersensitivity [Unknown]
  - Catheter site vesicles [Unknown]
  - Catheter site infection [Unknown]
  - Catheter site erythema [Unknown]
  - Rash [Unknown]
  - Catheter placement [Unknown]
  - Device leakage [Unknown]
  - Catheter site discharge [Unknown]
